FAERS Safety Report 9282772 (Version 3)
Quarter: 2013Q3

REPORT INFORMATION
  Report Type: Spontaneous
  Country: US (occurrence: US)
  Receive Date: 20130510
  Receipt Date: 20130820
  Transmission Date: 20140515
  Serious: Yes (Other)
  Sender: FDA-Public Use
  Company Number: US-BRISTOL-MYERS SQUIBB COMPANY-18856146

PATIENT
  Age: 54 Year
  Sex: Female

DRUGS (3)
  1. ORENCIA [Suspect]
     Indication: RHEUMATOID ARTHRITIS
     Dosage: IB65478,IC75781F18:IE64322,IE62323MR14:IE64328MY14:IF65794-APR14:IG64566-JUN14:IH58543-JL14:IK70605
     Route: 042
     Dates: start: 20110411, end: 20120501
  2. METHOTREXATE [Concomitant]
     Indication: RHEUMATOID ARTHRITIS
     Dosage: RESTARTED ON 7-MAR-2011,07MAY2011
     Dates: start: 200809
  3. LEFLUNOMIDE [Concomitant]
     Dosage: JL10-FB11:JL11-NV12
     Dates: start: 201007

REACTIONS (4)
  - Lung adenocarcinoma [Unknown]
  - Intestinal haemorrhage [Unknown]
  - Pancreatic mass [Unknown]
  - Swelling [Unknown]
